FAERS Safety Report 5510310-2 (Version None)
Quarter: 2007Q4

REPORT INFORMATION
  Report Type: 
  Country: None (occurrence: None)
  Receive Date: 20071108
  Receipt Date: 20071101
  Transmission Date: 20080405
  Serious: Yes (Other)
  Sender: FDA-Public Use
  Company Number: US-ASTRAZENECA-2007UW25472

PATIENT
  Age: 11 Year
  Sex: Female

DRUGS (2)
  1. SEROQUEL [Suspect]
     Dosage: 200MG AM; 200MG NOON; 600MG HS
     Route: 048
     Dates: start: 20061101
  2. DEPAKOTE [Concomitant]
     Dates: start: 20070801

REACTIONS (1)
  - AGRANULOCYTOSIS [None]
